FAERS Safety Report 4748500-9 (Version None)
Quarter: 2005Q3

REPORT INFORMATION
  Report Type: 
  Country: None (occurrence: None)
  Receive Date: 20050817
  Receipt Date: 20050810
  Transmission Date: 20060218
  Serious: Yes (Other)
  Sender: FDA-Public Use
  Company Number: 2005113711

PATIENT
  Sex: Female
  Weight: 60.782 kg

DRUGS (10)
  1. LIPITOR [Suspect]
     Indication: BLOOD CHOLESTEROL
     Dosage: (10 MG, 1 IN 2 D), ORAL
     Route: 048
  2. LIPITOR [Suspect]
     Indication: HYPERTENSION
     Dosage: (10 MG, 1 IN 2 D), ORAL
     Route: 048
  3. PROPRANOL (PROPRANOLOL [Concomitant]
  4. ULTRAM [Concomitant]
  5. TYLENOL [Concomitant]
  6. ASPIRIN [Concomitant]
  7. NORVASC [Concomitant]
  8. VITAMINS (VITAMINS) [Concomitant]
  9. CALCIUM (CALCIUM) [Concomitant]
  10. GLUCOSAMINE W/CHONDROITIN SULFATES (ASCORBIC ACID, CHONDROITIN SULFATE [Concomitant]

REACTIONS (3)
  - CARDIAC PACEMAKER INSERTION [None]
  - FIBROMYALGIA [None]
  - INAPPROPRIATE SCHEDULE OF DRUG ADMINISTRATION [None]
